FAERS Safety Report 13301707 (Version 2)
Quarter: 2017Q2

REPORT INFORMATION
  Report Type: Spontaneous
  Country: US (occurrence: US)
  Receive Date: 20170307
  Receipt Date: 20170407
  Transmission Date: 20170830
  Serious: No
  Sender: FDA-Public Use
  Company Number: US-BAXTER-2017BAX010221

PATIENT
  Age: 62 Year
  Sex: Female

DRUGS (1)
  1. EXTRANEAL [Suspect]
     Active Substance: CALCIUM CHLORIDE\ICODEXTRIN\MAGNESIUM CHLORIDE\SODIUM CHLORIDE\SODIUM LACTATE
     Indication: PERITONEAL DIALYSIS
     Route: 033

REACTIONS (5)
  - Eye irritation [Unknown]
  - Drug eruption [Unknown]
  - Eye pruritus [Unknown]
  - Influenza like illness [Unknown]
  - Rash macular [Unknown]

NARRATIVE: CASE EVENT DATE: 201701
